FAERS Safety Report 7763442-2 (Version None)
Quarter: 2011Q3

REPORT INFORMATION
  Report Type: 
  Country: None (occurrence: None)
  Receive Date: 20110920
  Receipt Date: 20110916
  Transmission Date: 20111222
  Serious: Yes (Hospitalization)
  Sender: FDA-Public Use
  Company Number: US-CEPHALON-2011004473

PATIENT
  Sex: Female
  Weight: 64 kg

DRUGS (5)
  1. CYCLOBENZAPRINE [Concomitant]
     Dates: start: 20090717
  2. ZOFRAN [Concomitant]
     Dates: start: 20100126
  3. RITUXIMAB [Suspect]
     Indication: NON-HODGKIN'S LYMPHOMA
     Route: 042
     Dates: start: 20090803, end: 20100118
  4. PROCHLORPERAZINE [Concomitant]
     Dates: start: 20090808
  5. TREANDA [Suspect]
     Indication: NON-HODGKIN'S LYMPHOMA
     Route: 042
     Dates: start: 20090803, end: 20100119

REACTIONS (1)
  - ILEUS [None]
